FAERS Safety Report 9359619 (Version 1)
Quarter: 2013Q2

REPORT INFORMATION
  Report Type: Spontaneous
  Country: US (occurrence: US)
  Receive Date: 20130620
  Receipt Date: 20130620
  Transmission Date: 20140414
  Serious: No
  Sender: FDA-Public Use
  Company Number: US-US-EMD SERONO, INC.-7160551

PATIENT
  Age: 25 Year
  Sex: Male

DRUGS (4)
  1. REBIF [Suspect]
     Indication: PRODUCT USED FOR UNKNOWN INDICATION
     Route: 058
     Dates: start: 20120828
  2. REBIF [Suspect]
     Route: 058
     Dates: start: 20120910
  3. IBUPROFEN [Concomitant]
     Indication: PREMEDICATION
     Route: 048
  4. ACETAMINOPHEN [Concomitant]
     Indication: PREMEDICATION

REACTIONS (5)
  - Nasopharyngitis [Unknown]
  - Epistaxis [Unknown]
  - Rhinorrhoea [Unknown]
  - Cough [Unknown]
  - Nasal congestion [Unknown]
